FAERS Safety Report 15072558 (Version 1)
Quarter: 2018Q2

REPORT INFORMATION
  Report Type: Spontaneous
  Country: IT (occurrence: IT)
  Receive Date: 20180627
  Receipt Date: 20180627
  Transmission Date: 20180711
  Serious: Yes (Hospitalization)
  Sender: FDA-Public Use
  Company Number: IT-ROCHE-2145363

PATIENT
  Age: 51 Year
  Sex: Female
  Weight: 79 kg

DRUGS (3)
  1. PERJETA [Suspect]
     Active Substance: PERTUZUMAB
     Indication: METAPLASTIC BREAST CARCINOMA
     Route: 065
     Dates: start: 20180410
  2. TAXOTERE [Suspect]
     Active Substance: DOCETAXEL
     Indication: METAPLASTIC BREAST CARCINOMA
     Route: 065
     Dates: start: 20180410
  3. HERCEPTIN [Suspect]
     Active Substance: TRASTUZUMAB
     Indication: METAPLASTIC BREAST CARCINOMA
     Route: 042
     Dates: start: 20180410

REACTIONS (1)
  - Deep vein thrombosis [Recovered/Resolved]

NARRATIVE: CASE EVENT DATE: 20180428
